FAERS Safety Report 23799442 (Version 1)
Quarter: 2024Q2

REPORT INFORMATION
  Report Type: Spontaneous
  Country: US (occurrence: None)
  Receive Date: 20240428
  Receipt Date: 20240428
  Transmission Date: 20240716
  Serious: No
  Sender: FDA-Public Use
  Company Number: None

PATIENT
  Age: 46 Year
  Sex: Female
  Weight: 72 kg

DRUGS (1)
  1. PROGESTERONE [Suspect]
     Active Substance: PROGESTERONE
     Dates: start: 20230313, end: 20230316

REACTIONS (9)
  - Arthropathy [None]
  - Anger [None]
  - Confusional state [None]
  - Brain fog [None]
  - Insomnia [None]
  - Pain in extremity [None]
  - Arthralgia [None]
  - Muscular weakness [None]
  - Bacterial infection [None]

NARRATIVE: CASE EVENT DATE: 20230313
